FAERS Safety Report 6771223-1 (Version None)
Quarter: 2010Q2

REPORT INFORMATION
  Report Type: 
  Country: None (occurrence: None)
  Receive Date: 20100616
  Receipt Date: 20100609
  Transmission Date: 20101027
  Serious: Yes (Death, Life-Threatening, Hospitalization)
  Sender: FDA-Public Use
  Company Number: JP-BAYER-200913090BYL

PATIENT
  Age: 55 Year
  Sex: Male
  Weight: 41 kg

DRUGS (9)
  1. NEXAVAR [Suspect]
     Indication: HEPATIC NEOPLASM MALIGNANT
     Dosage: TOTAL DAILY DOSE: 800 MG  UNIT DOSE: 200 MG
     Route: 048
     Dates: start: 20090810, end: 20090910
  2. FULCALIQ 1 [Concomitant]
     Route: 042
     Dates: start: 20090908
  3. ELEMENMIC [Concomitant]
     Route: 042
     Dates: start: 20090908
  4. VOLTAREN [Concomitant]
     Dosage: SINCE BEFORE NEXAVAR ADMINISTRATION
     Route: 054
  5. DUROTEP [Concomitant]
     Dosage: TOTAL DAILY DOSE: 33.6 MG
     Route: 062
  6. BISMUTH SUBNITRATE [Concomitant]
     Route: 048
     Dates: start: 20090829
  7. TAKEPRON [Concomitant]
     Dosage: SINCE BEFORE NEXAVAR ADMINISTRATION
     Route: 048
  8. MYSLEE [Concomitant]
     Dosage: SINCE BEFORE NEXAVAR ADMINISTRATION
     Route: 048
  9. ALBUMIN TANNATE [Concomitant]
     Route: 048
     Dates: start: 20090829

REACTIONS (11)
  - ANAEMIA [None]
  - BILIRUBIN CONJUGATED INCREASED [None]
  - BLOOD ALKALINE PHOSPHATASE INCREASED [None]
  - BLOOD BILIRUBIN INCREASED [None]
  - CONSTIPATION [None]
  - DECREASED APPETITE [None]
  - DIARRHOEA [None]
  - LIVER CARCINOMA RUPTURED [None]
  - METASTASES TO BONE [None]
  - PLATELET COUNT DECREASED [None]
  - PNEUMONIA BACTERIAL [None]
